FAERS Safety Report 5843785-X (Version None)
Quarter: 2008Q3

REPORT INFORMATION
  Report Type: 
  Country: None (occurrence: None)
  Receive Date: 20080808
  Receipt Date: 20080728
  Transmission Date: 20090109
  Serious: Yes (Other)
  Sender: FDA-Public Use
  Company Number: DSM-2008-00684

PATIENT
  Age: 43 Year
  Sex: Female

DRUGS (1)
  1. OPENVAS PLUS (HYDROCHLOROTHIAZIDE, OLMESARTAN MEDOXOMIL) (TABLET) (HYD [Suspect]
     Indication: HYPERTENSION
     Dosage: 20MG/25MG (1 IN 1 D), ORAL
     Route: 048
     Dates: start: 20080718, end: 20080720

REACTIONS (3)
  - DIZZINESS [None]
  - FALL [None]
  - SUPRAVENTRICULAR TACHYCARDIA [None]
